FAERS Safety Report 10858171 (Version 2)
Quarter: 2015Q1

REPORT INFORMATION
  Report Type: Spontaneous
  Country: FR (occurrence: FR)
  Receive Date: 20150223
  Receipt Date: 20150223
  Transmission Date: 20150721
  Serious: Yes (Other)
  Sender: FDA-Public Use
  Company Number: FR-BAXTER-2015BAX008628

PATIENT
  Age: 7 Year
  Sex: Female

DRUGS (1)
  1. SOLUTION INJECTABLE DE CHLORURE DE SODIUM ? 0.9 POUR CENT BAXTER, SOLU [Suspect]
     Active Substance: SODIUM CHLORIDE
     Indication: HAEMODYNAMIC INSTABILITY
     Dosage: 20 ML/KG
     Route: 042

REACTIONS (1)
  - Drug ineffective [Not Recovered/Not Resolved]
